FAERS Safety Report 6397226-7 (Version None)
Quarter: 2009Q4

REPORT INFORMATION
  Report Type: 
  Country: None (occurrence: None)
  Receive Date: 20091012
  Receipt Date: 20090929
  Transmission Date: 20100525
  Serious: Yes (Hospitalization)
  Sender: FDA-Public Use
  Company Number: DE-ROCHE-660874

PATIENT
  Sex: Male
  Weight: 90 kg

DRUGS (6)
  1. MYCOPHENOLATE MOFETIL [Suspect]
     Indication: RENAL TRANSPLANT
     Route: 048
  2. MYCOPHENOLATE MOFETIL [Suspect]
     Route: 048
     Dates: start: 20090728, end: 20090806
  3. MYCOPHENOLATE MOFETIL [Suspect]
     Route: 048
     Dates: start: 20090807, end: 20090914
  4. ADVAGRAF [Suspect]
     Indication: RENAL TRANSPLANT
     Dosage: LAST DOSE PRIOR TO SAE: 28 SEP 2009, FREQUENCY: ONCE
     Route: 048
     Dates: start: 20090421
  5. BASILIXIMAB [Suspect]
     Indication: RENAL TRANSPLANT
     Dosage: LAST DOSE PRIOR TO SAE: 25 APRIL 2009, FREQUENCY: 2
     Route: 042
     Dates: start: 20090420
  6. DECORTIN H [Suspect]
     Indication: RENAL TRANSPLANT
     Dosage: DATE OF LAST DOSE PRIOR TO SAE: 28 APRIL 2009
     Route: 048
     Dates: start: 20090420

REACTIONS (3)
  - BLOOD CREATININE INCREASED [None]
  - ILL-DEFINED DISORDER [None]
  - TRANSPLANT REJECTION [None]
